FAERS Safety Report 12184885 (Version 5)
Quarter: 2017Q4

REPORT INFORMATION
  Report Type: Report from Study
  Country: US (occurrence: US)
  Receive Date: 20160316
  Receipt Date: 20171110
  Transmission Date: 20180320
  Serious: Yes (Other)
  Sender: FDA-Public Use
  Company Number: US-SA-2016SA049802

PATIENT
  Age: 64 Year
  Sex: Male
  Weight: 57 kg

DRUGS (11)
  1. MELATONIN [Concomitant]
     Active Substance: MELATONIN
  2. ELOXATIN [Suspect]
     Active Substance: OXALIPLATIN
     Indication: ADENOCARCINOMA OF COLON
     Dosage: FREQUENCY: OVER  2 HOURS ON DAY 1
     Route: 042
     Dates: start: 20150420, end: 20150922
  3. RANITIDINE. [Concomitant]
     Active Substance: RANITIDINE
  4. 5-FU [Suspect]
     Active Substance: FLUOROURACIL
     Indication: ADENOCARCINOMA OF COLON
     Route: 042
     Dates: start: 20150420
  5. 5-FU [Suspect]
     Active Substance: FLUOROURACIL
     Indication: ADENOCARCINOMA OF COLON
     Dosage: FREQUENCY: OVER 46-48 HOURS ON DAY1
     Route: 042
     Dates: start: 20150420, end: 20150922
  6. PROCHLORPERAZINE. [Concomitant]
     Active Substance: PROCHLORPERAZINE
  7. 5-FU [Suspect]
     Active Substance: FLUOROURACIL
     Indication: ADENOCARCINOMA OF COLON
     Dosage: FREQUENCY: OVER 46-48 HOURS ON DAY1
     Route: 042
     Dates: start: 20150922, end: 20150924
  8. DECADRON [Concomitant]
     Active Substance: DEXAMETHASONE
  9. ELOXATIN [Suspect]
     Active Substance: OXALIPLATIN
     Indication: ADENOCARCINOMA OF COLON
     Dosage: FREQUENCY: 2 HOURS ON DAY 1
     Route: 042
  10. CELECOXIB. [Suspect]
     Active Substance: CELECOXIB
     Indication: ADENOCARCINOMA OF COLON
     Route: 048
     Dates: start: 20150505
  11. 5-FU [Suspect]
     Active Substance: FLUOROURACIL
     Indication: ADENOCARCINOMA OF COLON
     Dosage: FREQUENCY: ON DAY1
     Route: 040
     Dates: start: 20150922, end: 20150922

REACTIONS (1)
  - Pulmonary embolism [Recovered/Resolved]

NARRATIVE: CASE EVENT DATE: 20151102
